FAERS Safety Report 5931215-9 (Version None)
Quarter: 2008Q4

REPORT INFORMATION
  Report Type: 
  Country: None (occurrence: None)
  Receive Date: 20081023
  Receipt Date: 20081008
  Transmission Date: 20090506
  Serious: Yes (Death)
  Sender: FDA-Public Use
  Company Number: 2008S1018340

PATIENT
  Age: 31 Year
  Sex: Male

DRUGS (4)
  1. AZATHIOPRINE [Suspect]
     Indication: CROHN'S DISEASE
  2. MERCAPTOPURINE [Suspect]
     Indication: CROHN'S DISEASE
  3. INFLIXIMAB (INFLIXIMAB) [Suspect]
     Indication: DRUG USE FOR UNKNOWN INDICATION
  4. CORTICOSTEROIDS (CORTICOSTEROIDS) [Suspect]
     Indication: DRUG USE FOR UNKNOWN INDICATION

REACTIONS (1)
  - HEPATOSPLENIC T-CELL LYMPHOMA [None]
